FAERS Safety Report 4945963-0 (Version None)
Quarter: 2006Q1

REPORT INFORMATION
  Report Type: 
  Country: None (occurrence: None)
  Receive Date: 20060117
  Receipt Date: 20050218
  Transmission Date: 20060701
  Serious: Yes (Hospitalization, Other)
  Sender: FDA-Public Use
  Company Number: FEI2005-0323

PATIENT
  Age: 34 Year
  Sex: Female
  Weight: 75.2971 kg

DRUGS (2)
  1. INTRAUTERINE COPPER CONTRACEPTIVE [Suspect]
     Indication: CONTRACEPTION
     Dosage: INTRA-UTERINE
     Route: 067
     Dates: start: 20031002, end: 20050110
  2. INTRAUTERINE COPPER CONTRACEPTIVE [Suspect]
     Indication: CONTRACEPTION
     Dosage: INTRA-UTERINE
     Route: 067
     Dates: start: 20050110

REACTIONS (4)
  - ECTOPIC PREGNANCY [None]
  - MASTITIS [None]
  - METRORRHAGIA [None]
  - OVARIAN CYST [None]
